FAERS Safety Report 4715842-2 (Version None)
Quarter: 2005Q3

REPORT INFORMATION
  Report Type: 
  Country: None (occurrence: None)
  Receive Date: 20050718
  Receipt Date: 20050613
  Transmission Date: 20060218
  Serious: Yes (Hospitalization)
  Sender: FDA-Public Use
  Company Number: US-BRISTOL-MYERS SQUIBB COMPANY-13002175

PATIENT
  Age: 70 Year
  Sex: Female
  Weight: 69 kg

DRUGS (6)
  1. CETUXIMAB [Suspect]
     Indication: NON-SMALL CELL LUNG CANCER
     Dosage: 1ST CETUXIMAB INFUSION ADMINISTERED 17-MAY-2005 (DAY 1, 8 AND 15 OF EACH CYCLE).
     Route: 042
     Dates: start: 20050607, end: 20050607
  2. CARBOPLATIN [Suspect]
     Indication: NON-SMALL CELL LUNG CANCER
     Dosage: 1ST CARBOPLATIN INFUSION ADMINISTERED ON 17-MAY-2005 (DAY 1 OF EACH CYCLE).
     Route: 042
     Dates: start: 20050607, end: 20050607
  3. DOCETAXEL [Suspect]
     Indication: NON-SMALL CELL LUNG CANCER
     Dosage: 1ST DOCETAXEL INFUSION ADMINISTERED ON 17-MAY-2005 (DAY 1 OF EACH CYCLE).
     Route: 042
     Dates: start: 20050607, end: 20050607
  4. AMARYL [Concomitant]
     Indication: DIABETES MELLITUS
     Route: 048
  5. LABETALOL [Concomitant]
     Indication: HYPERTENSION
     Route: 048
  6. NORVASC [Concomitant]
     Indication: HYPERTENSION
     Route: 048

REACTIONS (1)
  - DEHYDRATION [None]
